FAERS Safety Report 5370330-8 (Version None)
Quarter: 2007Q2

REPORT INFORMATION
  Report Type: 
  Country: None (occurrence: None)
  Receive Date: 20070626
  Receipt Date: 20070615
  Transmission Date: 20071010
  Serious: Yes (Hospitalization)
  Sender: FDA-Public Use
  Company Number: JP-ROCHE-503134

PATIENT
  Age: 55 Year
  Sex: Male

DRUGS (2)
  1. RIBAVIRIN [Suspect]
     Dosage: DOSING UNIT: MG/DAY
     Route: 065
     Dates: start: 20050125, end: 20050401
  2. PEG-INTERFERON ALPHA 2B [Suspect]
     Dosage: DOSING UNIT: MCG/WEEK
     Route: 065
     Dates: start: 20050125, end: 20050401

REACTIONS (8)
  - ANAEMIA [None]
  - ANOREXIA [None]
  - COLITIS ULCERATIVE [None]
  - CONDITION AGGRAVATED [None]
  - MELAENA [None]
  - NEUTROPHIL COUNT DECREASED [None]
  - PLATELET COUNT DECREASED [None]
  - WEIGHT DECREASED [None]
